FAERS Safety Report 24345588 (Version 1)
Quarter: 2024Q3

REPORT INFORMATION
  Report Type: Spontaneous
  Country: US (occurrence: US)
  Receive Date: 20240920
  Receipt Date: 20240920
  Transmission Date: 20241016
  Serious: No
  Sender: VIVUS
  Company Number: US-VIVUS LLC-2024V1000571

PATIENT
  Age: 57 Year
  Sex: Female

DRUGS (4)
  1. QSYMIA [Suspect]
     Active Substance: PHENTERMINE HYDROCHLORIDE\TOPIRAMATE
     Indication: Weight decreased
     Route: 048
     Dates: start: 20210603, end: 2022
  2. QSYMIA [Suspect]
     Active Substance: PHENTERMINE HYDROCHLORIDE\TOPIRAMATE
     Indication: Urine alkalinisation therapy
  3. QSYMIA [Suspect]
     Active Substance: PHENTERMINE HYDROCHLORIDE\TOPIRAMATE
     Indication: Weight decreased
     Route: 048
     Dates: start: 20210520, end: 20210602
  4. QSYMIA [Suspect]
     Active Substance: PHENTERMINE HYDROCHLORIDE\TOPIRAMATE
     Indication: Urine alkalinisation therapy

REACTIONS (1)
  - Off label use [Recovered/Resolved]
